FAERS Safety Report 16802496 (Version 2)
Quarter: 2019Q3

REPORT INFORMATION
  Report Type: Spontaneous
  Country: US (occurrence: US)
  Receive Date: 20190912
  Receipt Date: 20190925
  Transmission Date: 20191005
  Serious: Yes (Hospitalization, Other)
  Sender: FDA-Public Use
  Company Number: US-ALNYLAM PHARMACEUTICALS, INC.-ALN-2019-000688

PATIENT
  Age: 71 Year
  Sex: Female
  Weight: 68.5 kg

DRUGS (5)
  1. DEXAMETHASONE. [Concomitant]
     Active Substance: DEXAMETHASONE
     Indication: PROPHYLAXIS
     Dosage: 10 MILLIGRAM, Q3W
     Route: 042
     Dates: start: 20190625
  2. PARACETAMOL [Concomitant]
     Active Substance: ACETAMINOPHEN
     Indication: PROPHYLAXIS
     Dosage: 650 MILLIGRAM, Q3W
     Route: 048
     Dates: start: 20190625
  3. FAMOTIDINE. [Concomitant]
     Active Substance: FAMOTIDINE
     Indication: PROPHYLAXIS
     Dosage: 20 MILLIGRAM, Q3W
     Route: 048
     Dates: start: 20190625
  4. DIPHENHYDRAMINE. [Concomitant]
     Active Substance: DIPHENHYDRAMINE
     Indication: PROPHYLAXIS
     Dosage: 50 MILLIGRAM, Q3W
     Route: 048
     Dates: start: 20190625
  5. ONPATTRO [Suspect]
     Active Substance: PATISIRAN SODIUM
     Indication: HEREDITARY NEUROPATHIC AMYLOIDOSIS
     Dosage: 21 MG IN 200 ML, Q3W
     Route: 042
     Dates: start: 20190625

REACTIONS (12)
  - Infusion related reaction [Unknown]
  - Nausea [Unknown]
  - Asthenia [Unknown]
  - Cardiogenic shock [Unknown]
  - Cardiac output decreased [Unknown]
  - Fatigue [Unknown]
  - Abdominal pain [Unknown]
  - Condition aggravated [Unknown]
  - Vomiting [Unknown]
  - Cardiomyopathy [Unknown]
  - Blood lactic acid increased [Unknown]
  - Abdominal distension [Unknown]

NARRATIVE: CASE EVENT DATE: 2019
